FAERS Safety Report 5199623-4 (Version None)
Quarter: 2007Q1

REPORT INFORMATION
  Report Type: 
  Country: None (occurrence: None)
  Receive Date: 20070103
  Receipt Date: 20070103
  Transmission Date: 20070707
  Serious: Yes (Life-Threatening, Hospitalization, Other)
  Sender: FDA-Public Use
  Company Number: None

PATIENT
  Age: 51 Year
  Sex: Female
  Weight: 81.6475 kg

DRUGS (2)
  1. CYMBALTA [Suspect]
     Indication: ANXIETY
     Dosage: 30 MG 2 PO
     Route: 048
     Dates: start: 20050120, end: 20060720
  2. CYMBALTA [Suspect]
     Indication: DEPRESSION
     Dosage: 30 MG 2 PO
     Route: 048
     Dates: start: 20050120, end: 20060720

REACTIONS (5)
  - DEPRESSION [None]
  - DRUG WITHDRAWAL SYNDROME [None]
  - OEDEMA PERIPHERAL [None]
  - SKIN ULCER HAEMORRHAGE [None]
  - SUICIDAL IDEATION [None]
